FAERS Safety Report 6022557-X (Version None)
Quarter: 2008Q4

REPORT INFORMATION
  Report Type: 
  Country: None (occurrence: None)
  Receive Date: 20081230
  Receipt Date: 20081219
  Transmission Date: 20090506
  Serious: Yes (Hospitalization)
  Sender: FDA-Public Use
  Company Number: PHHY2008JP26417

PATIENT
  Age: 81 Year
  Sex: Male
  Weight: 57 kg

DRUGS (7)
  1. ZOMETA [Suspect]
     Indication: METASTASES TO BONE
     Dosage: 4 MG, QMO
     Route: 042
     Dates: start: 20071128, end: 20081015
  2. ZOMETA [Suspect]
     Indication: HEPATIC CANCER METASTATIC
  3. UFT [Concomitant]
     Dosage: UNK
     Route: 048
     Dates: start: 20071120
  4. KRESTIN [Concomitant]
     Dosage: UNK
     Route: 048
     Dates: start: 20071128
  5. CALONAL [Concomitant]
     Dosage: UNK
     Route: 046
     Dates: start: 20071128
  6. OPSO [Concomitant]
     Dosage: UNK
     Route: 048
     Dates: start: 20071128
  7. VOLTAREN [Concomitant]
     Dosage: 75 MG
     Route: 048

REACTIONS (5)
  - BONE LESION [None]
  - GINGIVAL PAIN [None]
  - GINGIVAL SWELLING [None]
  - OSTEONECROSIS [None]
  - TOOTH EXTRACTION [None]
